FAERS Safety Report 18119652 (Version 1)
Quarter: 2020Q3

REPORT INFORMATION
  Report Type: Report from Study
  Country: NL (occurrence: NL)
  Receive Date: 20200806
  Receipt Date: 20200806
  Transmission Date: 20201103
  Serious: Yes (Other)
  Sender: FDA-Public Use
  Company Number: NL-JNJFOC-20200740894

PATIENT
  Age: 62 Year
  Sex: Female

DRUGS (7)
  1. SPRAVATO [Suspect]
     Active Substance: ESKETAMINE
  2. QUETIAPINE. [Concomitant]
     Active Substance: QUETIAPINE
  3. TEMAZEPAM. [Concomitant]
     Active Substance: TEMAZEPAM
  4. MIRTAZAPINE. [Concomitant]
     Active Substance: MIRTAZAPINE
  5. HALDOL [Concomitant]
     Active Substance: HALOPERIDOL
  6. SPRAVATO [Suspect]
     Active Substance: ESKETAMINE
     Indication: DEPRESSION
  7. ESCITALOPRAM [Concomitant]
     Active Substance: ESCITALOPRAM OXALATE

REACTIONS (2)
  - Mood swings [Unknown]
  - Suicidal ideation [Unknown]
